FAERS Safety Report 13478355 (Version 2)
Quarter: 2017Q3

REPORT INFORMATION
  Report Type: Report from Study
  Country: US (occurrence: US)
  Receive Date: 20170424
  Receipt Date: 20170728
  Transmission Date: 20171127
  Serious: No
  Sender: FDA-Public Use
  Company Number: US-AMGEN-USASL2017031040

PATIENT
  Sex: Female

DRUGS (1)
  1. REPATHA [Suspect]
     Active Substance: EVOLOCUMAB
     Indication: PRODUCT USED FOR UNKNOWN INDICATION
     Dosage: 140 MG, Q2WK
     Route: 065
     Dates: start: 201604, end: 201701

REACTIONS (7)
  - Musculoskeletal stiffness [Unknown]
  - Injection site bruising [Unknown]
  - Injection site pain [Unknown]
  - Hypoaesthesia [Unknown]
  - Drug dose omission [Unknown]
  - Paraesthesia [Unknown]
  - Injection site swelling [Unknown]
